FAERS Safety Report 23765215 (Version 1)
Quarter: 2024Q2

REPORT INFORMATION
  Report Type: Spontaneous
  Country: TR (occurrence: TR)
  Receive Date: 20240420
  Receipt Date: 20240420
  Transmission Date: 20240716
  Serious: Yes (Hospitalization, Other)
  Sender: FDA-Public Use
  Company Number: TR-CPL-004175

PATIENT
  Age: 63 Year
  Sex: Female

DRUGS (1)
  1. TELMISARTAN [Suspect]
     Active Substance: TELMISARTAN
     Indication: Essential hypertension
     Dosage: 80 MG PER ONCE DAILY
     Route: 048

REACTIONS (1)
  - Myopathy toxic [Recovered/Resolved]
